FAERS Safety Report 10514377 (Version 2)
Quarter: 2014Q4

REPORT INFORMATION
  Report Type: Spontaneous
  Country: JP (occurrence: JP)
  Receive Date: 20141013
  Receipt Date: 20141029
  Transmission Date: 20150528
  Serious: Yes (Hospitalization, Other)
  Sender: FDA-Public Use
  Company Number: JP-ACTAVIS-2014-21890

PATIENT
  Age: 51 Year
  Sex: Male

DRUGS (5)
  1. LEUCOVORIN                         /00566701/ [Suspect]
     Active Substance: LEUCOVORIN
     Indication: METASTASES TO LIVER
     Dosage: 100 MG/M2, CYCLICAL
     Route: 042
  2. 5-FLUOROURACIL                     /00098801/ [Suspect]
     Active Substance: FLUOROURACIL
     Indication: METASTASES TO LIVER
     Dosage: 60 MG/M2, CYCLICAL DAY1,2
     Route: 042
  3. BEVACIZUMAB [Suspect]
     Active Substance: BEVACIZUMAB
     Indication: METASTASES TO LIVER
     Dosage: 5 MG/KG, CYCLICAL
     Route: 065
  4. OXALIPLATIN (UNKNOWN) [Suspect]
     Active Substance: OXALIPLATIN
     Indication: METASTASES TO LIVER
     Dosage: 100 MG/M2, CYCLICAL DAY 1,22 COURSES
     Route: 065
  5. 5-FLUOROURACIL                     /00098801/ [Suspect]
     Active Substance: FLUOROURACIL
     Dosage: 400 MG/M2, CYCLICALDAY 1, 2
     Route: 042

REACTIONS (5)
  - Thrombocytopenia [Recovered/Resolved]
  - Portal hypertension [Recovered/Resolved]
  - Splenomegaly [Recovered/Resolved]
  - Hypersensitivity [Unknown]
  - Gastric varices haemorrhage [Recovered/Resolved]
